FAERS Safety Report 4736502-8 (Version None)
Quarter: 2005Q3

REPORT INFORMATION
  Report Type: 
  Country: None (occurrence: None)
  Receive Date: 20050808
  Receipt Date: 20050725
  Transmission Date: 20060218
  Serious: Yes (Hospitalization)
  Sender: FDA-Public Use
  Company Number: FRWYE853925JUL05

PATIENT
  Age: 70 Year
  Sex: Female

DRUGS (7)
  1. ENBREL [Suspect]
     Indication: DRUG USE FOR UNKNOWN INDICATION
     Route: 058
     Dates: start: 20050310, end: 20050524
  2. DIGOXIN [Concomitant]
     Dosage: UNKNOWN
     Route: 048
  3. CORTANCYL [Concomitant]
     Dosage: UNKNOWN
     Route: 048
  4. PLAQUENIL [Concomitant]
     Dosage: UNKNWON
     Route: 048
  5. MOLSIDOMINE [Concomitant]
     Dosage: UNKNWON
     Route: 048
  6. AMLODIPINE BESYLATE [Concomitant]
     Dosage: 5 MG
     Route: 048
  7. TRIMETAZIDINE [Concomitant]
     Dosage: UNKNOWN
     Route: 048

REACTIONS (9)
  - ARRHYTHMIA [None]
  - ATRIAL FIBRILLATION [None]
  - BUNDLE BRANCH BLOCK LEFT [None]
  - CARDIOMYOPATHY [None]
  - EJECTION FRACTION DECREASED [None]
  - ELECTROCARDIOGRAM REPOLARISATION ABNORMALITY [None]
  - HYPERTENSION [None]
  - MALAISE [None]
  - VENTRICULAR SEPTAL DEFECT [None]
